FAERS Safety Report 14347087 (Version 1)
Quarter: 2018Q1

REPORT INFORMATION
  Report Type: Spontaneous
  Country: US (occurrence: US)
  Receive Date: 20180102
  Receipt Date: 20180102
  Transmission Date: 20180509
  Serious: Yes (Other)
  Sender: FDA-Public Use
  Company Number: None

PATIENT
  Age: 73 Year
  Sex: Female
  Weight: 64 kg

DRUGS (2)
  1. GAMMAGARD LIQUID [Suspect]
     Active Substance: HUMAN IMMUNOGLOBULIN G
     Indication: POSTOPERATIVE CARE
     Route: 041
     Dates: start: 20171229, end: 20171229
  2. GAMMAGARD LIQUID [Suspect]
     Active Substance: HUMAN IMMUNOGLOBULIN G
     Indication: TRANSPLANT
     Route: 041
     Dates: start: 20171229, end: 20171229

REACTIONS (4)
  - Chills [None]
  - Pyrexia [None]
  - Feeling abnormal [None]
  - Hypertension [None]

NARRATIVE: CASE EVENT DATE: 20171229
